FAERS Safety Report 12981624 (Version 1)
Quarter: 2016Q4

REPORT INFORMATION
  Report Type: Spontaneous
  Country: US (occurrence: US)
  Receive Date: 20161129
  Receipt Date: 20161129
  Transmission Date: 20170207
  Serious: Yes (Other)
  Sender: FDA-Public Use
  Company Number: US-GLAXOSMITHKLINE-US2016175160

PATIENT
  Age: 76 Year

DRUGS (1)
  1. EXCEDRIN EXTRA STRENGTH [Suspect]
     Active Substance: ACETAMINOPHEN\ASPIRIN\CAFFEINE
     Indication: BACK PAIN
     Dosage: UNK
     Route: 048

REACTIONS (3)
  - Spinal operation [Unknown]
  - Unintentional use for unapproved indication [Unknown]
  - Hypoaesthesia [Unknown]
